FAERS Safety Report 8990899 (Version 1)
Quarter: 2012Q4

REPORT INFORMATION
  Report Type: Spontaneous
  Country: US (occurrence: None)
  Receive Date: 20121226
  Receipt Date: 20121226
  Transmission Date: 20130627
  Serious: No
  Sender: FDA-Public Use
  Company Number: None

PATIENT
  Sex: Female
  Weight: 64.86 kg

DRUGS (2)
  1. CARBAMAZEPINE [Suspect]
     Indication: TRIGEMINAL NEURALGIA
     Dates: start: 201012
  2. TEGRETOL XR [Suspect]

REACTIONS (3)
  - Product substitution issue [None]
  - Breakthrough pain [None]
  - Pain [None]
